FAERS Safety Report 18399926 (Version 2)
Quarter: 2020Q4

REPORT INFORMATION
  Report Type: Spontaneous
  Country: US (occurrence: US)
  Receive Date: 20201019
  Receipt Date: 20201020
  Transmission Date: 20210114
  Serious: No
  Sender: FDA-Public Use
  Company Number: US-PFIZER INC-2019234041

PATIENT
  Age: 79 Year
  Sex: Female

DRUGS (1)
  1. CHANTIX [Suspect]
     Active Substance: VARENICLINE TARTRATE
     Indication: SMOKING CESSATION THERAPY
     Dosage: 1 MG, 2X/DAY ( TAKE 1 TABLET (1 MG) WITH GLASS OF WATER BY ORAL ROUTE 2 TIMES PER DAY)
     Route: 048

REACTIONS (2)
  - Therapeutic product effect decreased [Unknown]
  - Cardiac disorder [Unknown]
